FAERS Safety Report 21766566 (Version 1)
Quarter: 2022Q4

REPORT INFORMATION
  Report Type: Report from Study
  Country: AT (occurrence: AT)
  Receive Date: 20221222
  Receipt Date: 20221222
  Transmission Date: 20230113
  Serious: Yes (Other)
  Sender: FDA-Public Use
  Company Number: AT-TEVA-2022-AT-2838376

PATIENT

DRUGS (7)
  1. TACROLIMUS [Suspect]
     Active Substance: TACROLIMUS
     Indication: Immunosuppressant drug therapy
     Dosage: IMMUNOSUPPRESSANT DRUG THERAPY WITH LOW DOSE TACROLIMUS (TARGET RANGE 8-10 NG/ML BETWEEN MONTHS 1-6)
     Route: 065
  2. TACROLIMUS [Suspect]
     Active Substance: TACROLIMUS
     Dosage: IMMUNOSUPPRESSANT DRUG THERAPY WITH LOW DOSE TACROLIMUS (TARGET RANGE 5-8 NG/ML }6 MONTHS)
     Route: 065
  3. MYCOPHENOLATE MOFETIL [Suspect]
     Active Substance: MYCOPHENOLATE MOFETIL
     Indication: Immunosuppressant drug therapy
     Dosage: 1 GRAM DAILY; MYCOPHENOLATE MOFETIL 1 G/DAY ON POSTOPERATIVE DAY 0
     Route: 065
  4. MYCOPHENOLATE MOFETIL [Suspect]
     Active Substance: MYCOPHENOLATE MOFETIL
     Dosage: 2 GRAM DAILY; MYCOPHENOLATE MOFETIL INCREASED TO 2 G/DAY
     Route: 065
  5. METHYLPREDNISOLONE [Suspect]
     Active Substance: METHYLPREDNISOLONE
     Indication: Immunosuppressant drug therapy
     Dosage: METHYLPREDNISOLONE (500MG INTRAOPERATIVELY)
     Route: 065
  6. METHYLPREDNISOLONE [Suspect]
     Active Substance: METHYLPREDNISOLONE
     Dosage: 125MG METHYLPREDNISOLONE EVERY 8 HOURS IN THE FIRST 24 HOURS
     Route: 065
  7. PREDNISOLONE [Suspect]
     Active Substance: PREDNISOLONE
     Indication: Immunosuppressant drug therapy
     Dosage: .2 MG/KG DAILY;
     Route: 065

REACTIONS (1)
  - Cytomegalovirus enteritis [Recovered/Resolved]
